FAERS Safety Report 5674902-2 (Version None)
Quarter: 2008Q1

REPORT INFORMATION
  Report Type: 
  Country: None (occurrence: None)
  Receive Date: 20080320
  Receipt Date: 20080310
  Transmission Date: 20080703
  Serious: Yes (Other)
  Sender: FDA-Public Use
  Company Number: AR-ROCHE-552151

PATIENT
  Age: 63 Year
  Sex: Female

DRUGS (2)
  1. XENICAL [Suspect]
     Indication: OVERWEIGHT
     Route: 048
     Dates: start: 20071101, end: 20080301
  2. 1 CONCOMITANT DRUG [Concomitant]
     Indication: RHEUMATOID ARTHRITIS
     Dosage: DRUG NAME REPORTED: EMBREL

REACTIONS (1)
  - HYPOTHYROIDISM [None]
